FAERS Safety Report 7393690-5 (Version None)
Quarter: 2011Q2

REPORT INFORMATION
  Report Type: 
  Country: None (occurrence: None)
  Receive Date: 20110405
  Receipt Date: 20110328
  Transmission Date: 20111010
  Serious: Yes (Hospitalization, Other)
  Sender: FDA-Public Use
  Company Number: US-JNJFOC-20100801575

PATIENT
  Sex: Female

DRUGS (3)
  1. LEVAQUIN [Suspect]
     Indication: CYSTITIS
     Route: 048
  2. CIPROFLOXACIN [Suspect]
     Indication: URINARY TRACT INFECTION
     Route: 065
  3. LEVAQUIN [Suspect]
     Indication: URINARY TRACT INFECTION
     Route: 048

REACTIONS (9)
  - MENISCUS LESION [None]
  - TRIGGER FINGER [None]
  - BURSITIS [None]
  - JOINT INJURY [None]
  - ROTATOR CUFF SYNDROME [None]
  - PAIN IN EXTREMITY [None]
  - TENDON RUPTURE [None]
  - TENDONITIS [None]
  - TENDON DISORDER [None]
